FAERS Safety Report 24623810 (Version 1)
Quarter: 2024Q4

REPORT INFORMATION
  Report Type: Spontaneous
  Country: US (occurrence: None)
  Receive Date: 20241114
  Receipt Date: 20241114
  Transmission Date: 20250115
  Serious: No
  Sender: Public
  Company Number: None

PATIENT
  Age: 44 Year
  Sex: Female
  Weight: 74.25 kg

DRUGS (5)
  1. AIMOVIG [Suspect]
     Active Substance: ERENUMAB-AOOE
     Indication: Cluster headache
     Dosage: OTHER QUANTITY : 1 INJECTION(S);?OTHER FREQUENCY : 1/MONTH;?
     Route: 058
     Dates: start: 20240912
  2. AIMOVIG [Suspect]
     Active Substance: ERENUMAB-AOOE
     Indication: Migraine
  3. Junel oral birth control [Concomitant]
  4. VITAMINS [Concomitant]
     Active Substance: VITAMINS
  5. Daily glucosamine/chondroitin [Concomitant]

REACTIONS (6)
  - Injection site reaction [None]
  - Injection site erythema [None]
  - Injection site rash [None]
  - Injection site pain [None]
  - Injection site pain [None]
  - Injection site pruritus [None]

NARRATIVE: CASE EVENT DATE: 20241114
